FAERS Safety Report 9331192 (Version 1)
Quarter: 2013Q2

REPORT INFORMATION
  Report Type: Spontaneous
  Country: GB (occurrence: GB)
  Receive Date: 20130605
  Receipt Date: 20130605
  Transmission Date: 20140414
  Serious: Yes (Hospitalization)
  Sender: FDA-Public Use
  Company Number: GB-TEVA-408823ISR

PATIENT
  Age: 68 Year
  Sex: Female
  Weight: 50.5 kg

DRUGS (16)
  1. FUROSEMIDE [Suspect]
     Indication: OEDEMA
     Dosage: 20 MILLIGRAM DAILY;
     Route: 048
     Dates: end: 20130417
  2. FUROSEMIDE [Suspect]
     Indication: OEDEMA
     Dosage: 40 MILLIGRAM DAILY;
     Route: 048
     Dates: start: 20130418, end: 20130507
  3. INDAPAMIDE [Suspect]
     Indication: OEDEMA
     Route: 048
     Dates: end: 20130507
  4. SALBUTAMOL [Concomitant]
  5. ALENDRONIC ACID [Concomitant]
  6. BISOPROLOL [Concomitant]
  7. CALCICHEW D3 [Concomitant]
  8. TIOTROPIUM [Concomitant]
  9. CARBOCISTEINE [Concomitant]
  10. PARACETAMOL [Concomitant]
  11. SALMETEROL [Concomitant]
  12. PRAVASTATIN [Concomitant]
  13. ASPIRIN [Concomitant]
  14. OXERUTINS [Concomitant]
  15. QUININE SULPHATE [Concomitant]
  16. SENNA [Concomitant]

REACTIONS (6)
  - Hyponatraemia [Recovering/Resolving]
  - Hypokalaemia [Recovering/Resolving]
  - Dizziness [Unknown]
  - Malaise [Unknown]
  - Circulatory collapse [Unknown]
  - Face injury [Unknown]
